FAERS Safety Report 7239557-4 (Version None)
Quarter: 2011Q1

REPORT INFORMATION
  Report Type: 
  Country: None (occurrence: None)
  Receive Date: 20110121
  Receipt Date: 20110107
  Transmission Date: 20110831
  Serious: Yes (Other)
  Sender: FDA-Public Use
  Company Number: NL-AMGEN-NLDSP2010004971

PATIENT

DRUGS (8)
  1. MTX [Concomitant]
  2. PREDNISONE [Concomitant]
  3. ARAVA [Concomitant]
  4. VITAMIN D [Concomitant]
  5. MELOXICAM [Concomitant]
  6. ENBREL [Suspect]
     Indication: RHEUMATOID ARTHRITIS
     Dosage: 50 MG, WEEKLY
     Dates: start: 20100701, end: 20100901
  7. FOLIC ACID [Concomitant]
  8. PLAQUENIL [Concomitant]

REACTIONS (6)
  - INJECTION SITE PRURITUS [None]
  - INJECTION SITE INDURATION [None]
  - INJECTION SITE ERYTHEMA [None]
  - INJECTION SITE PAIN [None]
  - RHEUMATOID ARTHRITIS [None]
  - GAIT DISTURBANCE [None]
